FAERS Safety Report 8315759-0 (Version None)
Quarter: 2012Q2

REPORT INFORMATION
  Report Type: 
  Country: None (occurrence: None)
  Receive Date: 20120426
  Receipt Date: 20120418
  Transmission Date: 20120825
  Serious: Yes (Hospitalization)
  Sender: FDA-Public Use
  Company Number: US-JNJFOC-20120408519

PATIENT
  Age: 26 Year
  Sex: Female
  Weight: 51.5 kg

DRUGS (6)
  1. ACETAMINOPHEN [Suspect]
     Indication: PRODUCT USED FOR UNKNOWN INDICATION
     Route: 048
  2. LORTAB [Suspect]
     Indication: PRODUCT USED FOR UNKNOWN INDICATION
     Route: 048
  3. BACTRIM [Suspect]
     Indication: CYSTITIS
     Route: 048
  4. ACETAMINOPHEN [Suspect]
     Route: 048
  5. VALPROATE SODIUM [Suspect]
     Indication: PRODUCT USED FOR UNKNOWN INDICATION
     Route: 048
  6. CLONAZEPAM [Suspect]
     Indication: PRODUCT USED FOR UNKNOWN INDICATION
     Route: 048

REACTIONS (3)
  - INTENTIONAL SELF-INJURY [None]
  - LIVER FUNCTION TEST ABNORMAL [None]
  - MULTIPLE DRUG OVERDOSE [None]
